FAERS Safety Report 12570116 (Version 1)
Quarter: 2016Q3

REPORT INFORMATION
  Report Type: Spontaneous
  Country: US (occurrence: None)
  Receive Date: 20160718
  Receipt Date: 20160718
  Transmission Date: 20161109
  Serious: Yes (Hospitalization)
  Sender: FDA-Public Use
  Company Number: None

PATIENT
  Age: 67 Year
  Sex: Female
  Weight: 74.84 kg

DRUGS (8)
  1. OMEPRESOLE [Concomitant]
  2. OMEPRAZOLE, 20 MG [Suspect]
     Active Substance: OMEPRAZOLE
     Indication: GASTROOESOPHAGEAL REFLUX DISEASE
     Dosage: 90 CAPSULE(S) IN THE MORNING TAKEN BY MOUTH
     Route: 048
     Dates: start: 20160201, end: 20160710
  3. ESCITALOPRAM, 10MG [Suspect]
     Active Substance: ESCITALOPRAM OXALATE
     Indication: ANXIETY
     Dosage: 90 TABLET(S) IN THE MORNING TAKEN BY MOUTH
     Route: 048
     Dates: start: 20160518, end: 20160710
  4. LEXAPRO [Concomitant]
     Active Substance: ESCITALOPRAM OXALATE
  5. VITAMIN C [Concomitant]
     Active Substance: ASCORBIC ACID
  6. VITAMIN D3 [Concomitant]
     Active Substance: CHOLECALCIFEROL
  7. BCOMPEX [Concomitant]
  8. CALCIUM [Concomitant]
     Active Substance: CALCIUM

REACTIONS (9)
  - Seizure [None]
  - Lip injury [None]
  - Blood calcium decreased [None]
  - Contusion [None]
  - Blood potassium decreased [None]
  - Road traffic accident [None]
  - Foot fracture [None]
  - Impaired driving ability [None]
  - Laceration [None]

NARRATIVE: CASE EVENT DATE: 20160710
